FAERS Safety Report 7761970-7 (Version None)
Quarter: 2011Q3

REPORT INFORMATION
  Report Type: 
  Country: None (occurrence: None)
  Receive Date: 20110920
  Receipt Date: 20100726
  Transmission Date: 20111222
  Serious: No
  Sender: FDA-Public Use
  Company Number: US-BAYER-201031634NA

PATIENT
  Sex: Female

DRUGS (1)
  1. MIRENA [Suspect]
     Indication: CONTRACEPTION
     Dosage: 20 MCG/24HR, CONT
     Dates: start: 20100601

REACTIONS (4)
  - VAGINAL HAEMORRHAGE [None]
  - RASH PRURITIC [None]
  - URTICARIA [None]
  - ABDOMINAL PAIN LOWER [None]
